FAERS Safety Report 8803068 (Version 2)
Quarter: 2014Q2

REPORT INFORMATION
  Report Type: Spontaneous
  Country: NO (occurrence: NO)
  Receive Date: 20120924
  Receipt Date: 20131028
  Transmission Date: 20141212
  Serious: Yes (Hospitalization, Other)
  Sender: FDA-Public Use
  Company Number: NO-PFIZER INC-2012231962

PATIENT
  Age: 7 Decade
  Sex: Female

DRUGS (4)
  1. METHYLPREDNISOLONE SODIUM SUCCINATE [Suspect]
     Indication: GRANULOMATOSIS WITH POLYANGIITIS
     Dosage: 1000 MG, 1X/DAY X 5 DAYS
     Route: 042
  2. METHYLPREDNISOLONE SODIUM SUCCINATE [Suspect]
     Dosage: 20 MG X 3
  3. RITUXIMAB [Concomitant]
     Indication: GRANULOMATOSIS WITH POLYANGIITIS
     Route: 065
  4. CYCLOPHOSPHAMIDE [Concomitant]
     Indication: GRANULOMATOSIS WITH POLYANGIITIS
     Dosage: 15 MG/KG EVERY OTHER WEEK
     Route: 042

REACTIONS (2)
  - Critical illness myopathy [Recovered/Resolved]
  - Neuropathy peripheral [Recovered/Resolved]
